FAERS Safety Report 15745931 (Version 1)
Quarter: 2018Q4

REPORT INFORMATION
  Report Type: Spontaneous
  Country: CA (occurrence: CA)
  Receive Date: 20181220
  Receipt Date: 20181220
  Transmission Date: 20190205
  Serious: Yes (Death, Hospitalization, Other)
  Sender: FDA-Public Use
  Company Number: CA-GILEAD-2018-0381140

PATIENT
  Age: 67 Year
  Sex: Male

DRUGS (1)
  1. ZYDELIG [Suspect]
     Active Substance: IDELALISIB
     Indication: NEOPLASM MALIGNANT
     Dosage: 150 MG
     Route: 065

REACTIONS (42)
  - Clostridium difficile colitis [Fatal]
  - Bronchitis [Fatal]
  - Cheilitis [Fatal]
  - Decreased appetite [Fatal]
  - Pleural effusion [Fatal]
  - Pneumonia [Fatal]
  - Rash generalised [Fatal]
  - Skin exfoliation [Fatal]
  - Gait disturbance [Fatal]
  - Lip pain [Fatal]
  - Pain [Fatal]
  - Pyrexia [Fatal]
  - Fatigue [Fatal]
  - Myalgia [Fatal]
  - Night sweats [Fatal]
  - Oral disorder [Fatal]
  - Rales [Fatal]
  - Nausea [Fatal]
  - Oral pain [Fatal]
  - Cough [Fatal]
  - Erythema [Fatal]
  - Influenza [Fatal]
  - Onychomadesis [Fatal]
  - Oral candidiasis [Fatal]
  - Abdominal pain upper [Fatal]
  - Blood potassium decreased [Fatal]
  - Dyspepsia [Fatal]
  - Penile erythema [Fatal]
  - Stomatitis [Fatal]
  - Skin discomfort [Fatal]
  - Chills [Fatal]
  - Feeling abnormal [Fatal]
  - Abnormal faeces [Fatal]
  - Diarrhoea [Fatal]
  - Dyspnoea [Fatal]
  - Nasal congestion [Fatal]
  - Vomiting [Fatal]
  - Abdominal discomfort [Fatal]
  - Headache [Fatal]
  - Pneumonitis [Fatal]
  - Malaise [Fatal]
  - Pain of skin [Fatal]
